FAERS Safety Report 10473140 (Version 3)
Quarter: 2014Q4

REPORT INFORMATION
  Report Type: Spontaneous
  Country: ES (occurrence: None)
  Receive Date: 20140922
  Receipt Date: 20141001
  Transmission Date: 20150528
  Serious: Yes (Disabling)
  Sender: FDA-Public Use
  Company Number: 2014ES008020

PATIENT
  Age: 78 Year
  Sex: Male
  Weight: 88 kg

DRUGS (13)
  1. FUROSEMIDE (FUROSEMIDE) [Concomitant]
     Active Substance: FUROSEMIDE
  2. FLIXOTIDE (FLUTICASONE PROPIONATE) [Concomitant]
     Active Substance: FLUTICASONE PROPIONATE
  3. DIGOXIN (DIGOXIN) [Concomitant]
     Active Substance: DIGOXIN
  4. SINTROM (ACENOCOUMAROL) [Concomitant]
     Active Substance: ACENOCOUMAROL
  5. LOBIVON (NEBIVOLOL HYDROCHLORIDE) [Concomitant]
  6. ATROVENT (IMPRATROPIUM BROMIDE) [Concomitant]
  7. ELIGARD [Suspect]
     Active Substance: LEUPROLIDE ACETATE
     Indication: PROSTATE CANCER
     Dosage: BIANUALLY
     Route: 058
     Dates: start: 20140320, end: 20140320
  8. GLICLAZIDE (GLICLAZIDE) [Concomitant]
     Active Substance: GLICLAZIDE
  9. CLOPIDOGREL [Concomitant]
     Active Substance: CLOPIDOGREL BISULFATE
  10. TRAJENTA (LINAGLIPTIN) [Concomitant]
     Active Substance: LINAGLIPTIN
  11. ALLOPURINOL (ALLOPURINOL) [Concomitant]
     Active Substance: ALLOPURINOL
  12. ALDACTONE [Concomitant]
     Active Substance: SPIRONOLACTONE
  13. RANITIDINE [Concomitant]
     Active Substance: RANITIDINE\RANITIDINE HYDROCHLORIDE

REACTIONS (2)
  - Pain in extremity [None]
  - Peripheral swelling [None]

NARRATIVE: CASE EVENT DATE: 2014
